FAERS Safety Report 8964062 (Version 2)
Quarter: 2013Q1

REPORT INFORMATION
  Report Type: Report from Study
  Country: CA (occurrence: CA)
  Receive Date: 20121214
  Receipt Date: 20130110
  Transmission Date: 20140127
  Serious: Yes (Hospitalization)
  Sender: FDA-Public Use
  Company Number: CA-JNJFOC-20121203000

PATIENT
  Age: 27 None
  Sex: Male
  Weight: 55.79 kg

DRUGS (5)
  1. REMICADE [Suspect]
     Indication: COLITIS ULCERATIVE
     Route: 042
     Dates: start: 2012
  2. AZATHIOPRINE [Concomitant]
     Route: 065
  3. PREDNISONE [Concomitant]
     Route: 065
  4. PANTOPRAZOLE [Concomitant]
     Route: 065
  5. MULTIVITAMINS [Concomitant]
     Route: 065

REACTIONS (7)
  - Colitis ulcerative [Unknown]
  - Renal disorder [Unknown]
  - Kidney fibrosis [Unknown]
  - Nephrolithiasis [Recovered/Resolved]
  - Gastrointestinal infection [Unknown]
  - Fatigue [Unknown]
  - Nausea [Unknown]
